FAERS Safety Report 7968465-6 (Version None)
Quarter: 2011Q4

REPORT INFORMATION
  Report Type: 
  Country: None (occurrence: None)
  Receive Date: 20111209
  Receipt Date: 20111201
  Transmission Date: 20120403
  Serious: Yes (Other)
  Sender: FDA-Public Use
  Company Number: FR-GENZYME-THYM-1002904

PATIENT
  Sex: Female
  Weight: 73 kg

DRUGS (17)
  1. TRACITRAN [Concomitant]
     Indication: PRODUCT USED FOR UNKNOWN INDICATION
     Dosage: UNK
     Dates: start: 20111018
  2. GABAPENTIN [Concomitant]
     Indication: PRODUCT USED FOR UNKNOWN INDICATION
     Dosage: 300 MG, TID
     Dates: start: 20111018
  3. THYMOGLOBULIN [Suspect]
     Indication: BONE MARROW CONDITIONING REGIMEN
     Dosage: 275 MG, QD
     Dates: start: 20111022, end: 20111022
  4. OXYCODONE HCL [Concomitant]
     Indication: PRODUCT USED FOR UNKNOWN INDICATION
     Dosage: 5 MG, Q4HR
     Dates: start: 20111018
  5. MESNA [Concomitant]
     Indication: PRODUCT USED FOR UNKNOWN INDICATION
     Dosage: 182.4 MG, QID
     Dates: start: 20111020, end: 20111025
  6. CERNEVIT-12 [Concomitant]
     Indication: PRODUCT USED FOR UNKNOWN INDICATION
     Dosage: UNK
     Dates: start: 20111018
  7. PANTOPRAZOLE [Concomitant]
     Indication: PRODUCT USED FOR UNKNOWN INDICATION
     Dosage: 20 MG, QD
     Dates: start: 20111018
  8. DELURSAN [Concomitant]
     Indication: PRODUCT USED FOR UNKNOWN INDICATION
     Dosage: 500 MG, QD
     Dates: start: 20111020
  9. SOLU-MEDROL [Concomitant]
     Indication: BONE MARROW CONDITIONING REGIMEN
     Dosage: 20 MG, BID
     Dates: start: 20111022, end: 20111024
  10. PLITICAN [Concomitant]
     Indication: PRODUCT USED FOR UNKNOWN INDICATION
     Dosage: 50 MG, Q4HR
     Dates: start: 20111022
  11. CYCLOPHOSPHAMIDE [Concomitant]
     Indication: BONE MARROW CONDITIONING REGIMEN
     Dosage: 547.2 MG, QD
     Dates: start: 20111020, end: 20111023
  12. FLUDARA [Concomitant]
     Indication: BONE MARROW CONDITIONING REGIMEN
     Dosage: 54.72 MG, QD
     Dates: start: 20111020, end: 20111023
  13. POLARAMINE [Concomitant]
     Indication: BONE MARROW CONDITIONING REGIMEN
     Dosage: 10 MG, UNK
     Route: 042
     Dates: start: 20111022, end: 20111023
  14. AMITRIPTYLINE HCL [Concomitant]
     Indication: PRODUCT USED FOR UNKNOWN INDICATION
     Dosage: 25 MG, QD
     Dates: start: 20111018
  15. ZOFRAN [Concomitant]
     Indication: PRODUCT USED FOR UNKNOWN INDICATION
     Dosage: UNK
     Dates: start: 20111020, end: 20111026
  16. MAGNESIUM SULFATE [Concomitant]
     Indication: PRODUCT USED FOR UNKNOWN INDICATION
     Dosage: UNK
     Dates: start: 20111018
  17. VALACYCLOVIR HYDROCHLORIDE [Concomitant]
     Indication: PRODUCT USED FOR UNKNOWN INDICATION
     Dosage: 500 MG, Q4HR
     Dates: start: 20111018, end: 20111025

REACTIONS (3)
  - CYTOLYTIC HEPATITIS [None]
  - HYPOTENSION [None]
  - COAGULOPATHY [None]
